FAERS Safety Report 6809662-2 (Version None)
Quarter: 2010Q2

REPORT INFORMATION
  Report Type: 
  Country: None (occurrence: None)
  Receive Date: 20100630
  Receipt Date: 20100618
  Transmission Date: 20101027
  Serious: Yes (Other)
  Sender: FDA-Public Use
  Company Number: US-PFIZER INC-2010077247

PATIENT
  Sex: Male
  Weight: 79.365 kg

DRUGS (3)
  1. ZOLOFT [Suspect]
     Indication: PANIC ATTACK
     Dosage: 25 MG, 1X/DAY
     Route: 048
  2. ZOLOFT [Suspect]
     Indication: ANXIETY
     Dosage: 50 MG, 1X/DAY
     Route: 048
  3. ZOLOFT [Suspect]
     Dosage: 150 MG, 1X/DAY
     Route: 048

REACTIONS (9)
  - ANXIETY [None]
  - DEPRESSION [None]
  - DIZZINESS [None]
  - DYSPNOEA [None]
  - FEELING JITTERY [None]
  - HYPERHIDROSIS [None]
  - INSOMNIA [None]
  - PANIC ATTACK [None]
  - TREMOR [None]
